FAERS Safety Report 19004789 (Version 1)
Quarter: 2021Q1

REPORT INFORMATION
  Report Type: Spontaneous
  Country: ZA (occurrence: ZA)
  Receive Date: 20210313
  Receipt Date: 20210313
  Transmission Date: 20210420
  Serious: Yes (Hospitalization, Other)
  Sender: FDA-Public Use
  Company Number: ZA-LUPIN PHARMACEUTICALS INC.-2021-02926

PATIENT
  Sex: Female

DRUGS (7)
  1. EUTHYROX [Suspect]
     Active Substance: LEVOTHYROXINE SODIUM
     Dosage: 100 MICROGRAM
     Route: 048
  2. EPILIZINE [Suspect]
     Active Substance: VALPROATE SODIUM
     Dosage: 500 MILLIGRAM
     Route: 048
  3. SYNALEVE [CAFFEINE;CODEINE PHOSPHATE;MEPROBAMATE;PARACETAMOL] [Suspect]
     Active Substance: ACETAMINOPHEN\CAFFEINE\CODEINE PHOSPHATE\MEPROBAMATE
     Indication: PAIN
     Dosage: UNK
     Route: 048
  4. FLEXOCAM TABLET [Suspect]
     Active Substance: MELOXICAM
     Indication: PAIN
     Dosage: 7.5 MILLIGRAM
     Route: 048
  5. EPILIZINE [Suspect]
     Active Substance: VALPROATE SODIUM
     Indication: EPILEPSY
     Dosage: 300 MILLIGRAM
     Route: 048
  6. EUTHYROX [Suspect]
     Active Substance: LEVOTHYROXINE SODIUM
     Indication: THYROID DISORDER
     Dosage: 150 MICROGRAM (50MCG AND 100MCG)
     Route: 048
  7. BISOZYD CO [Suspect]
     Active Substance: BISOPROLOL FUMARATE\HYDROCHLOROTHIAZIDE
     Indication: HYPERTENSION
     Dosage: 5/6.25 MICROGRAM
     Route: 048

REACTIONS (1)
  - Cardiac failure [Unknown]
